FAERS Safety Report 6187225-2 (Version None)
Quarter: 2009Q2

REPORT INFORMATION
  Report Type: 
  Country: None (occurrence: None)
  Receive Date: 20090512
  Receipt Date: 20090416
  Transmission Date: 20091009
  Serious: No
  Sender: FDA-Public Use
  Company Number: US-BAYER-200911025BCC

PATIENT
  Age: 56 Year
  Sex: Female
  Weight: 45 kg

DRUGS (2)
  1. ALEVE [Suspect]
     Indication: NERVE COMPRESSION
     Dosage: AS USED: 440 MG  UNIT DOSE: 220 MG
     Route: 048
     Dates: start: 20080401, end: 20080701
  2. ALEVE [Suspect]
     Route: 048

REACTIONS (1)
  - NERVE COMPRESSION [None]
